FAERS Safety Report 18353246 (Version 1)
Quarter: 2020Q4

REPORT INFORMATION
  Report Type: Spontaneous
  Country: US (occurrence: US)
  Receive Date: 20201006
  Receipt Date: 20201006
  Transmission Date: 20210114
  Serious: No
  Sender: FDA-Public Use
  Company Number: US-ALLERGAN-1936421US

PATIENT
  Age: 91 Year
  Sex: Female

DRUGS (3)
  1. LINZESS [Suspect]
     Active Substance: LINACLOTIDE
     Indication: ILEUS PARALYTIC
     Dosage: 145 ?G, QD
     Dates: end: 20190904
  2. LINZESS [Suspect]
     Active Substance: LINACLOTIDE
     Indication: MYELITIS TRANSVERSE
     Dosage: 75 ?G
  3. UNSPECIFIED MEDICATIONS FOR HYPERTENSION [Concomitant]
     Indication: HYPERTENSION

REACTIONS (3)
  - Heart rate decreased [Recovered/Resolved]
  - Wrong technique in product usage process [Unknown]
  - Off label use [Unknown]
